FAERS Safety Report 7579800-5 (Version None)
Quarter: 2011Q2

REPORT INFORMATION
  Report Type: 
  Country: None (occurrence: None)
  Receive Date: 20110629
  Receipt Date: 20110620
  Transmission Date: 20111010
  Serious: Yes (Hospitalization)
  Sender: FDA-Public Use
  Company Number: IT-NOVOPROD-329597

PATIENT
  Sex: Female

DRUGS (8)
  1. REPAGLINIDE [Suspect]
     Route: 048
  2. LIPONORM                           /00001301/ [Concomitant]
  3. ALLOPURINOL [Concomitant]
  4. ASPIRIN [Concomitant]
  5. REPAGLINIDE [Suspect]
     Indication: DIABETES MELLITUS
     Dosage: 2 TAB, QD
     Route: 048
     Dates: start: 20000721
  6. ENALAPRIL MALEATE [Concomitant]
  7. LERCADIP                           /01366401/ [Concomitant]
  8. LASIX [Concomitant]

REACTIONS (1)
  - HYPOGLYCAEMIC COMA [None]
